FAERS Safety Report 8413653-8 (Version None)
Quarter: 2012Q2

REPORT INFORMATION
  Report Type: 
  Country: None (occurrence: None)
  Receive Date: 20120605
  Receipt Date: 20120522
  Transmission Date: 20120825
  Serious: No
  Sender: FDA-Public Use
  Company Number: US-ASTRAZENECA-2012SE32921

PATIENT
  Age: 81 Year
  Sex: Female
  Weight: 77.1 kg

DRUGS (1)
  1. CRESTOR [Suspect]
     Indication: BLOOD CHOLESTEROL INCREASED
     Route: 048

REACTIONS (5)
  - DIABETES MELLITUS [None]
  - COUGH [None]
  - HEARING IMPAIRED [None]
  - BLOOD PRESSURE ABNORMAL [None]
  - OFF LABEL USE [None]
